FAERS Safety Report 7074797-9 (Version None)
Quarter: 2010Q4

REPORT INFORMATION
  Report Type: 
  Country: None (occurrence: None)
  Receive Date: 20101029
  Receipt Date: 20101029
  Transmission Date: 20110411
  Serious: Yes (Life-Threatening, Hospitalization)
  Sender: FDA-Public Use
  Company Number: JP-ABBOTT-09P-087-0606116-00

PATIENT
  Sex: Female

DRUGS (1)
  1. LEUPLIN DEPOT [Suspect]
     Dates: start: 20090701, end: 20091026

REACTIONS (2)
  - PULMONARY HYPERTENSION [None]
  - SHOCK [None]
